FAERS Safety Report 16235643 (Version 1)
Quarter: 2019Q2

REPORT INFORMATION
  Report Type: Spontaneous
  Country: US (occurrence: US)
  Receive Date: 20190424
  Receipt Date: 20190424
  Transmission Date: 20190711
  Serious: No
  Sender: FDA-Public Use
  Company Number: US-GLENMARK PHARMACEUTICALS-2019GMK040094

PATIENT

DRUGS (3)
  1. GABAPENTIN TABLETS [Suspect]
     Active Substance: GABAPENTIN
     Indication: NEURALGIA
     Dosage: 600 MG, TID (DURATION OF USE: A YEAR AGO; UNSPECIFIED)
     Route: 048
     Dates: start: 2017
  2. ERIVEDGE [Concomitant]
     Active Substance: VISMODEGIB
     Indication: CHEMOTHERAPY
     Dosage: 150 MG, QD
     Route: 065
  3. TEMAZEPAM. [Concomitant]
     Active Substance: TEMAZEPAM
     Indication: SLEEP DISORDER
     Dosage: 30 MG, HS (AT BEDTIME) (DURATION OF USE: SINCE 2 YEARS)
     Route: 048

REACTIONS (4)
  - Neuralgia [Not Recovered/Not Resolved]
  - Condition aggravated [Not Recovered/Not Resolved]
  - Malaise [Not Recovered/Not Resolved]
  - Drug ineffective for unapproved indication [Unknown]

NARRATIVE: CASE EVENT DATE: 2017
